FAERS Safety Report 12089347 (Version 2)
Quarter: 2016Q1

REPORT INFORMATION
  Report Type: Spontaneous
  Country: GB (occurrence: GB)
  Receive Date: 20160218
  Receipt Date: 20160223
  Transmission Date: 20160526
  Serious: Yes (Hospitalization)
  Sender: FDA-Public Use
  Company Number: GB-ACTAVIS-2016-03073

PATIENT
  Age: 56 Year
  Sex: Male

DRUGS (10)
  1. LANTUS [Concomitant]
     Active Substance: INSULIN GLARGINE
     Indication: TYPE 2 DIABETES MELLITUS
     Dosage: 100 IU, UNK
     Route: 058
     Dates: start: 20140128, end: 20151130
  2. BISOPROLOL (UNKNOWN) [Suspect]
     Active Substance: BISOPROLOL
     Indication: ARRHYTHMIA
     Dosage: 2.5 MG, DAILY
     Route: 048
     Dates: start: 20140114
  3. ATORVASTATIN [Concomitant]
     Active Substance: ATORVASTATIN
     Indication: HYPERCHOLESTEROLAEMIA
     Dosage: 80 MG, DAILY
     Route: 048
     Dates: start: 20141128
  4. COCODAMOL [Concomitant]
     Active Substance: ACETAMINOPHEN\CODEINE PHOSPHATE
     Indication: PAIN IN EXTREMITY
     Dosage: 1 DF, Q6H
     Route: 048
     Dates: start: 20150617
  5. LEVETIRACETAM. [Concomitant]
     Active Substance: LEVETIRACETAM
     Indication: PAIN IN EXTREMITY
     Dosage: 250 MG, DAILY
     Route: 048
     Dates: start: 20150127
  6. TADALAFIL [Concomitant]
     Active Substance: TADALAFIL
     Indication: EJACULATION FAILURE
     Dosage: 10 MG, PRN
     Route: 048
     Dates: start: 20150513
  7. ASPIRIN. [Concomitant]
     Active Substance: ASPIRIN
     Indication: CARDIOVASCULAR DISORDER
     Dosage: 75 MG, DAILY
     Route: 048
     Dates: start: 20141128
  8. NOVORAPID [Concomitant]
     Active Substance: INSULIN ASPART
     Indication: TYPE 2 DIABETES MELLITUS
     Dosage: 100 IU, PRN
     Route: 058
     Dates: start: 20140428
  9. TAMSULOSIN [Concomitant]
     Active Substance: TAMSULOSIN
     Indication: LOWER URINARY TRACT SYMPTOMS
     Dosage: 400 ?G, DAILY
     Route: 048
     Dates: start: 20151120, end: 20151130
  10. DULOXETINE (UNKNOWN) [Suspect]
     Active Substance: DULOXETINE
     Indication: DIZZINESS
     Dosage: 120 MG, DAILY
     Route: 048

REACTIONS (2)
  - Off label use [Unknown]
  - Orthostatic hypotension [Recovered/Resolved]

NARRATIVE: CASE EVENT DATE: 20151127
